FAERS Safety Report 5093066-X (Version None)
Quarter: 2006Q3

REPORT INFORMATION
  Report Type: 
  Country: None (occurrence: None)
  Receive Date: 20060830
  Receipt Date: 20060824
  Transmission Date: 20061208
  Serious: Yes (Life-Threatening, Hospitalization, Disabling)
  Sender: FDA-Public Use
  Company Number: GB-SANOFI-SYNTHELABO-A01200606908

PATIENT
  Age: 68 Year
  Sex: Female
  Weight: 56 kg

DRUGS (5)
  1. METOCLOPRAMIDE [Concomitant]
     Indication: NAUSEA
     Dosage: UNK
     Route: 048
  2. GRANISETRON [Concomitant]
     Indication: NAUSEA
     Dosage: UNK
     Route: 048
  3. DEXAMETHASONE [Concomitant]
     Indication: NAUSEA
     Dosage: UNK
     Route: 065
  4. XELODA [Suspect]
     Route: 048
     Dates: start: 20060630, end: 20060630
  5. ELOXATIN [Suspect]
     Indication: COLON CANCER
     Route: 042
     Dates: start: 20060630, end: 20060630

REACTIONS (4)
  - CONFUSIONAL STATE [None]
  - CONSCIOUSNESS FLUCTUATING [None]
  - GRAND MAL CONVULSION [None]
  - SOMNOLENCE [None]
